FAERS Safety Report 14643390 (Version 1)
Quarter: 2018Q1

REPORT INFORMATION
  Report Type: Spontaneous
  Country: US (occurrence: US)
  Receive Date: 20180315
  Receipt Date: 20180315
  Transmission Date: 20180509
  Serious: No
  Sender: FDA-Public Use
  Company Number: None

PATIENT
  Age: 74 Year
  Sex: Female

DRUGS (1)
  1. LEUKERAN [Suspect]
     Active Substance: CHLORAMBUCIL
     Indication: ACUTE LYMPHOCYTIC LEUKAEMIA
     Dosage: 34MG DAY 1 AND DAY 15TH ORAL
     Route: 048
     Dates: start: 20180131, end: 20180202

REACTIONS (4)
  - Swelling face [None]
  - Dyspnoea [None]
  - Rash [None]
  - Therapy cessation [None]

NARRATIVE: CASE EVENT DATE: 20180202
